FAERS Safety Report 8265421-8 (Version None)
Quarter: 2012Q2

REPORT INFORMATION
  Report Type: 
  Country: None (occurrence: None)
  Receive Date: 20120406
  Receipt Date: 20120402
  Transmission Date: 20120825
  Serious: Yes (Hospitalization)
  Sender: FDA-Public Use
  Company Number: FR-PFIZER INC-2012082362

PATIENT
  Age: 48 Year
  Sex: Male

DRUGS (13)
  1. DOXORUBICIN HCL [Suspect]
     Indication: DIFFUSE LARGE B-CELL LYMPHOMA
     Dosage: 151 MG, CYCLIC
     Route: 042
     Dates: start: 20100205, end: 20100327
  2. BLEOMYCIN SULFATE [Suspect]
     Indication: DIFFUSE LARGE B-CELL LYMPHOMA
     Dosage: 10 MG, CYCLIC
     Route: 042
     Dates: start: 20100205, end: 20100323
  3. VINDESINE [Concomitant]
     Indication: DIFFUSE LARGE B-CELL LYMPHOMA
     Dosage: UNK
     Dates: start: 20100205, end: 20100327
  4. MABTHERA [Suspect]
     Indication: DIFFUSE LARGE B-CELL LYMPHOMA
     Dosage: UNK
     Route: 042
     Dates: start: 20100205, end: 20100327
  5. MABTHERA [Suspect]
     Dosage: UNK
     Route: 042
     Dates: start: 20100531
  6. DEXRAZOXANE HYDROCHLORIDE [Suspect]
     Indication: DIFFUSE LARGE B-CELL LYMPHOMA
     Dosage: 3000 MG, CYCLIC
     Route: 042
     Dates: start: 20100205, end: 20100327
  7. ETOPOPHOS PRESERVATIVE FREE [Suspect]
     Indication: DIFFUSE LARGE B-CELL LYMPHOMA
     Dosage: UNK
     Route: 042
     Dates: start: 20100531
  8. CYCLOPHOSPHAMIDE [Suspect]
     Indication: DIFFUSE LARGE B-CELL LYMPHOMA
     Dosage: UNK
     Route: 042
     Dates: start: 20100205, end: 20100327
  9. IFOSFAMIDE [Suspect]
     Indication: DIFFUSE LARGE B-CELL LYMPHOMA
     Dosage: UNK
     Route: 042
     Dates: start: 20100531
  10. METHOTREXATE [Suspect]
     Indication: DIFFUSE LARGE B-CELL LYMPHOMA
     Dosage: UNK
     Route: 037
     Dates: start: 20100205, end: 20100327
  11. PREDNISONE [Concomitant]
     Indication: DIFFUSE LARGE B-CELL LYMPHOMA
     Dosage: UNK
     Dates: start: 20100205, end: 20100327
  12. METHOTREXATE [Suspect]
     Dosage: 6200 MG (3 G/M2), CYCLIC
     Route: 037
     Dates: start: 20100429, end: 20100514
  13. CYTARABINE [Suspect]
     Indication: DIFFUSE LARGE B-CELL LYMPHOMA
     Dosage: CYCLIC
     Route: 042
     Dates: end: 20100930

REACTIONS (2)
  - NEOPLASM MALIGNANT [None]
  - ACUTE MYELOMONOCYTIC LEUKAEMIA [None]
